FAERS Safety Report 5441836-8 (Version None)
Quarter: 2007Q3

REPORT INFORMATION
  Report Type: 
  Country: None (occurrence: None)
  Receive Date: 20070904
  Receipt Date: 20070823
  Transmission Date: 20080115
  Serious: Yes (Hospitalization)
  Sender: FDA-Public Use
  Company Number: US-ELI_LILLY_AND_COMPANY-US200708005276

PATIENT
  Age: 30 Year
  Sex: Female

DRUGS (9)
  1. CYMBALTA [Suspect]
     Indication: DEPRESSION
     Dosage: 60 MG, 2/D
     Route: 048
  2. POTASSIUM CHLORIDE [Concomitant]
  3. NYSTATIN [Concomitant]
  4. MAGNESIUM SULFATE [Concomitant]
  5. LORAZEPAM [Concomitant]
  6. METHADONE HCL [Concomitant]
  7. GABAPENTIN [Concomitant]
  8. FENTANYL [Concomitant]
  9. CASPOFUNGIN [Concomitant]

REACTIONS (1)
  - NECROTISING FASCIITIS STAPHYLOCOCCAL [None]
